FAERS Safety Report 21646928 (Version 2)
Quarter: 2022Q4

REPORT INFORMATION
  Report Type: Spontaneous
  Country: ES (occurrence: ES)
  Receive Date: 20221127
  Receipt Date: 20221202
  Transmission Date: 20230113
  Serious: Yes (Hospitalization, Other)
  Sender: FDA-Public Use
  Company Number: ES-TEVA-2022-ES-2828970

PATIENT
  Age: 82 Year
  Sex: Male

DRUGS (4)
  1. FENTANYL TRANSDERMAL SYSTEM [Suspect]
     Active Substance: FENTANYL
     Indication: Spinal cord injury
     Dosage: 12 MICROGRAMOS
     Route: 062
     Dates: start: 202103
  2. FENTANYL TRANSDERMAL SYSTEM [Suspect]
     Active Substance: FENTANYL
     Indication: Joint prosthesis user
     Dosage: 18 MICROGRAMOS
     Route: 062
  3. FENTANYL TRANSDERMAL SYSTEM [Suspect]
     Active Substance: FENTANYL
     Indication: Osteoporosis
     Dosage: 25 MICROGRAMOS
     Route: 062
     Dates: start: 202103
  4. FENTANYL TRANSDERMAL SYSTEM [Suspect]
     Active Substance: FENTANYL
     Indication: Osteoarthritis
     Dosage: 25 MICROGRAMOS
     Route: 062
     Dates: start: 202103

REACTIONS (7)
  - Femur fracture [Recovered/Resolved]
  - Fall [Recovered/Resolved]
  - Knee operation [Recovered/Resolved]
  - Pain [Not Recovered/Not Resolved]
  - Anxiety [Recovered/Resolved]
  - Depression [Recovered/Resolved]
  - Therapeutic product effect variable [Unknown]

NARRATIVE: CASE EVENT DATE: 20220601
